FAERS Safety Report 8060964-4 (Version None)
Quarter: 2012Q1

REPORT INFORMATION
  Report Type: 
  Country: None (occurrence: None)
  Receive Date: 20120120
  Receipt Date: 20120110
  Transmission Date: 20120608
  Serious: Yes (Other)
  Sender: FDA-Public Use
  Company Number: US-RB-031650-11

PATIENT
  Sex: Female

DRUGS (5)
  1. WELLBUTRIN SR [Concomitant]
     Dosage: 50MG BID
  2. BUPRENORPHINE [Suspect]
     Indication: DRUG DEPENDENCE
     Route: 060
     Dates: start: 20110720, end: 20111001
  3. PNV-DHA [Concomitant]
  4. MULTIVITAMIN [Concomitant]
  5. ONDANSETRON HCL [Concomitant]

REACTIONS (2)
  - PREMATURE DELIVERY [None]
  - MATERNAL EXPOSURE DURING PREGNANCY [None]
